FAERS Safety Report 11460171 (Version 2)
Quarter: 2015Q3

REPORT INFORMATION
  Report Type: Spontaneous
  Country: US (occurrence: US)
  Receive Date: 20150904
  Receipt Date: 20150923
  Transmission Date: 20151125
  Serious: Yes (Other)
  Sender: FDA-Public Use
  Company Number: US-APOTEX-2015AP012570

PATIENT
  Age: 7 Decade
  Sex: Male

DRUGS (5)
  1. LISINOPRIL. [Interacting]
     Active Substance: LISINOPRIL
     Dosage: 20 MG, DAILY
     Route: 065
  2. SIMVASTATIN. [Concomitant]
     Active Substance: SIMVASTATIN
     Indication: PRODUCT USED FOR UNKNOWN INDICATION
     Route: 065
  3. MELOXICAM. [Interacting]
     Active Substance: MELOXICAM
     Dosage: 15 MG DAILY
     Route: 065
  4. LISINOPRIL. [Interacting]
     Active Substance: LISINOPRIL
     Indication: HYPERTENSION
     Dosage: 10 MG DAILY
     Route: 065
  5. MELOXICAM. [Suspect]
     Active Substance: MELOXICAM
     Indication: ARTHRALGIA
     Dosage: UNK, PRN
     Route: 065

REACTIONS (3)
  - Hypertension [Unknown]
  - Drug interaction [Unknown]
  - Renal failure [Unknown]
